FAERS Safety Report 8789557 (Version 1)
Quarter: 2012Q4

REPORT INFORMATION
  Report Type: Spontaneous
  Country: US (occurrence: None)
  Receive Date: 20120906
  Receipt Date: 20120906
  Transmission Date: 20130627
  Serious: Yes (Other)
  Sender: FDA-Public Use
  Company Number: A0991755A

PATIENT
  Sex: Female

DRUGS (1)
  1. CALCIUM CARBONATE [Suspect]
     Indication: PRODUCT USED FOR UNKNOWN INDICATION
     Dosage: INTRANASAL
     Route: 045

REACTIONS (2)
  - Intentional drug misuse [None]
  - Wrong technique in drug usage process [None]
